FAERS Safety Report 17498152 (Version 1)
Quarter: 2020Q1

REPORT INFORMATION
  Report Type: Report from Study
  Country: ES (occurrence: ES)
  Receive Date: 20200304
  Receipt Date: 20200304
  Transmission Date: 20200409
  Serious: Yes (Hospitalization)
  Sender: FDA-Public Use
  Company Number: ES-BAUSCH-BL-2020-006054

PATIENT
  Age: 72 Year
  Sex: Male

DRUGS (6)
  1. METFORMINA [Suspect]
     Active Substance: METFORMIN HYDROCHLORIDE
     Indication: DIABETES MELLITUS
     Route: 048
     Dates: start: 20110620, end: 20171119
  2. AMLODIPINO [Concomitant]
     Active Substance: AMLODIPINE BESYLATE
     Indication: HYPERTENSION
     Route: 048
     Dates: start: 20170602, end: 20171119
  3. LACTITOLMONOHIDRATO [Concomitant]
     Indication: HEPATIC CIRRHOSIS
     Route: 048
     Dates: start: 20171110, end: 20171119
  4. ENALAPRIL/HIDROCLOROTIAZIDA [Interacting]
     Active Substance: ENALAPRIL\HYDROCHLOROTHIAZIDE
     Indication: HYPERTENSION
     Route: 048
     Dates: end: 20171119
  5. GLIMEPIRIDA [Interacting]
     Active Substance: GLIMEPIRIDE
     Indication: DIABETES MELLITUS
     Route: 048
     Dates: start: 20110620, end: 20171119
  6. PANTOPRAZOL [Concomitant]
     Active Substance: PANTOPRAZOLE SODIUM
     Indication: PROPHYLAXIS
     Route: 048
     Dates: start: 20171027

REACTIONS (1)
  - Acute kidney injury [Recovering/Resolving]

NARRATIVE: CASE EVENT DATE: 201711
